FAERS Safety Report 21979817 (Version 1)
Quarter: 2023Q1

REPORT INFORMATION
  Report Type: Spontaneous
  Country: US (occurrence: US)
  Receive Date: 20230210
  Receipt Date: 20230210
  Transmission Date: 20230418
  Serious: Yes (Other)
  Sender: FDA-Public Use
  Company Number: US-MLMSERVICE-20230125-4062844-1

PATIENT
  Age: 50 Year
  Sex: Female

DRUGS (12)
  1. LOTEPREDNOL [Suspect]
     Active Substance: LOTEPREDNOL
     Indication: Antiinflammatory therapy
     Route: 065
  2. PREDNISOLONE ACETATE [Suspect]
     Active Substance: PREDNISOLONE ACETATE
     Indication: Antiinflammatory therapy
     Route: 061
  3. DORZOLAMIDE [Suspect]
     Active Substance: DORZOLAMIDE
     Indication: Product used for unknown indication
     Route: 065
  4. KENALOG [Suspect]
     Active Substance: TRIAMCINOLONE ACETONIDE
     Indication: Uveitis
     Dosage: SUB-TENON INJECTION
     Route: 065
  5. ILEVRO [Concomitant]
     Active Substance: NEPAFENAC
     Indication: Antiinflammatory therapy
     Route: 061
  6. ACETAZOLAMIDE [Concomitant]
     Active Substance: ACETAZOLAMIDE
     Indication: Intraocular pressure test
     Route: 065
  7. BRIMONIDINE [Concomitant]
     Active Substance: BRIMONIDINE TARTRATE
     Indication: Product used for unknown indication
     Route: 065
  8. BRIMONIDINE [Concomitant]
     Active Substance: BRIMONIDINE TARTRATE
     Indication: Product used for unknown indication
  9. LATANOPROST;NETARSUDIL [Concomitant]
     Indication: Product used for unknown indication
     Dosage: AT BEDTIME
     Route: 065
  10. LATANOPROST;NETARSUDIL [Concomitant]
     Indication: Product used for unknown indication
  11. TRAVOPROST [Concomitant]
     Active Substance: TRAVOPROST
     Indication: Product used for unknown indication
     Dosage: ONLY MEDICATION IN THE RIGHT EYE.
     Route: 065
  12. TRAVOPROST [Concomitant]
     Active Substance: TRAVOPROST
     Indication: Product used for unknown indication

REACTIONS (4)
  - Open angle glaucoma [Recovered/Resolved]
  - Iritis [Unknown]
  - Withdrawal syndrome [Unknown]
  - Drug intolerance [Unknown]
